FAERS Safety Report 4972184-8 (Version None)
Quarter: 2006Q2

REPORT INFORMATION
  Report Type: 
  Country: None (occurrence: None)
  Receive Date: 20060413
  Receipt Date: 20060410
  Transmission Date: 20061013
  Serious: Yes (Life-Threatening)
  Sender: FDA-Public Use
  Company Number: US-GLAXOSMITHKLINE-A0601473A

PATIENT
  Sex: Male

DRUGS (2)
  1. ADVAIR DISKUS 100/50 [Suspect]
  2. ALBUTEROL [Suspect]

REACTIONS (4)
  - CHOKING [None]
  - DRUG INEFFECTIVE [None]
  - INJURY ASPHYXIATION [None]
  - RESPIRATORY ARREST [None]
